FAERS Safety Report 5720486-X (Version None)
Quarter: 2008Q2

REPORT INFORMATION
  Report Type: 
  Country: None (occurrence: None)
  Receive Date: 20080423
  Receipt Date: 20070416
  Transmission Date: 20081010
  Serious: Yes (Life-Threatening, Other)
  Sender: FDA-Public Use
  Company Number: 239628

PATIENT
  Age: 66 Year
  Sex: Female
  Weight: 73.5 kg

DRUGS (3)
  1. AVASTIN [Suspect]
     Indication: LUNG NEOPLASM MALIGNANT
     Dosage: 1000 MG, Q3W, INTRAVENOUS
     Route: 042
     Dates: start: 20070118, end: 20070212
  2. TAXOL [Concomitant]
  3. CARBOPLATIN [Concomitant]

REACTIONS (2)
  - ERYTHEMA [None]
  - INFUSION RELATED REACTION [None]
